FAERS Safety Report 12336853 (Version 2)
Quarter: 2016Q2

REPORT INFORMATION
  Report Type: Spontaneous
  Country: CO (occurrence: CO)
  Receive Date: 20160505
  Receipt Date: 20160621
  Transmission Date: 20160815
  Serious: Yes (Hospitalization)
  Sender: FDA-Public Use
  Company Number: CO-AUROBINDO-AUR-APL-2016-05832

PATIENT
  Age: 11 Year
  Sex: Male
  Weight: 50 kg

DRUGS (1)
  1. PIPERACILLIN AND TAZOBACTAM [Suspect]
     Active Substance: PIPERACILLIN SODIUM\TAZOBACTAM SODIUM
     Indication: PERITONITIS
     Dosage: 4.5 G, UNK
     Route: 042
     Dates: start: 20160328, end: 20160407

REACTIONS (1)
  - Treatment failure [Recovered/Resolved]

NARRATIVE: CASE EVENT DATE: 20160328
